FAERS Safety Report 5339528-9 (Version None)
Quarter: 2007Q2

REPORT INFORMATION
  Report Type: 
  Country: None (occurrence: None)
  Receive Date: 20070404
  Receipt Date: 20060405
  Transmission Date: 20071010
  Serious: Yes (Disabling)
  Sender: FDA-Public Use
  Company Number: 2005136623

PATIENT
  Sex: 0

DRUGS (5)
  1. GEODON [Suspect]
     Indication: DYSTONIA
     Dosage: 120 MG (60 MG, 2 IN 1 D)
     Dates: end: 20041001
  2. GEODON [Suspect]
     Indication: TORTICOLLIS
     Dosage: 120 MG (60 MG, 2 IN 1 D)
     Dates: end: 20041001
  3. LEXAPRO [Concomitant]
  4. TRAZODONE HCL [Concomitant]
  5. LORAZEPAM [Concomitant]

REACTIONS (2)
  - EXTRAPYRAMIDAL DISORDER [None]
  - TORTICOLLIS [None]
